FAERS Safety Report 23312539 (Version 5)
Quarter: 2024Q1

REPORT INFORMATION
  Report Type: Report from Study
  Country: US (occurrence: US)
  Receive Date: 20231219
  Receipt Date: 20240104
  Transmission Date: 20240409
  Serious: Yes (Hospitalization, Other)
  Sender: FDA-Public Use
  Company Number: US-JNJFOC-20231033342

PATIENT
  Age: 68 Year
  Sex: Female
  Weight: 79.5 kg

DRUGS (6)
  1. SELEXIPAG [Suspect]
     Active Substance: SELEXIPAG
     Indication: Pulmonary arterial hypertension
     Route: 048
  2. SELEXIPAG [Suspect]
     Active Substance: SELEXIPAG
     Indication: Pulmonary hypertension
     Route: 048
  3. AMBRISENTAN [Concomitant]
     Active Substance: AMBRISENTAN
  4. ELIQUIS [Concomitant]
     Active Substance: APIXABAN
  5. ADEMPAS [Concomitant]
     Active Substance: RIOCIGUAT
  6. ADEMPAS [Concomitant]
     Active Substance: RIOCIGUAT

REACTIONS (17)
  - Pain [Unknown]
  - Diarrhoea [Unknown]
  - Tooth infection [Not Recovered/Not Resolved]
  - Pneumonia [Recovering/Resolving]
  - Graves^ disease [Unknown]
  - Scleroderma [Unknown]
  - Eructation [Unknown]
  - Dysphagia [Unknown]
  - COVID-19 [Unknown]
  - Full blood count abnormal [Unknown]
  - Gastrooesophageal reflux disease [Unknown]
  - Haemorrhage [Unknown]
  - Stress [Unknown]
  - Hypertension [Unknown]
  - Somnolence [Not Recovered/Not Resolved]
  - Musculoskeletal chest pain [Unknown]
  - Fatigue [Unknown]

NARRATIVE: CASE EVENT DATE: 20230801
